FAERS Safety Report 19804807 (Version 4)
Quarter: 2022Q1

REPORT INFORMATION
  Report Type: Spontaneous
  Country: CA (occurrence: CA)
  Receive Date: 20210908
  Receipt Date: 20220202
  Transmission Date: 20220423
  Serious: Yes (Death, Life-Threatening)
  Sender: FDA-Public Use
  Company Number: CA-PFIZER INC-202101138836

PATIENT
  Age: 61 Year
  Sex: Male
  Weight: 74.8 kg

DRUGS (2)
  1. BRAFTOVI [Suspect]
     Active Substance: ENCORAFENIB
     Indication: Colon cancer metastatic
     Dosage: 300 MG, 1X/DAY
     Route: 048
     Dates: start: 20210823, end: 20210828
  2. CETUXIMAB [Concomitant]
     Active Substance: CETUXIMAB
     Indication: Metastatic renal cell carcinoma
     Dosage: 784 MG
     Dates: end: 20210828

REACTIONS (1)
  - Cardiac arrest [Fatal]

NARRATIVE: CASE EVENT DATE: 20210828
